FAERS Safety Report 5365805-1 (Version None)
Quarter: 2007Q2

REPORT INFORMATION
  Report Type: 
  Country: None (occurrence: None)
  Receive Date: 20070621
  Receipt Date: 20070608
  Transmission Date: 20071010
  Serious: Yes (Other)
  Sender: FDA-Public Use
  Company Number: IT-SHR-IT-2007-021863

PATIENT

DRUGS (1)
  1. AZA + IFNB-1B VS IFNS-1B IN SPMS [Suspect]
     Indication: SECONDARY PROGRESSIVE MULTIPLE SCLEROSIS
     Dosage: DOUBLE-BLIND

REACTIONS (1)
  - LEUKAEMIA [None]
